FAERS Safety Report 5957320-9 (Version None)
Quarter: 2008Q4

REPORT INFORMATION
  Report Type: 
  Country: None (occurrence: None)
  Receive Date: 20081118
  Receipt Date: 20081114
  Transmission Date: 20090506
  Serious: Yes (Hospitalization)
  Sender: FDA-Public Use
  Company Number: JP-B.I. PHARMACEUTICALS,INC./RIDGEFIELD-2008-BP-16627NB

PATIENT
  Sex: Male
  Weight: 64 kg

DRUGS (7)
  1. MICARDIS [Suspect]
     Indication: HYPERTENSION
     Dosage: 40MG
     Route: 048
     Dates: start: 20080918, end: 20081016
  2. WARFARIN SODIUM [Concomitant]
     Dosage: 2.25MG
     Route: 048
  3. LANIRAPID [Concomitant]
     Dosage: .1MG
     Route: 048
  4. GASTER D [Concomitant]
     Dosage: 20MG
     Route: 048
  5. AMARYL [Concomitant]
     Dosage: .5MG
     Route: 048
  6. LIPITOR [Concomitant]
     Dosage: 10MG
     Route: 048
  7. OLMETEC [Concomitant]
     Dosage: 20MG
     Route: 048
     Dates: start: 20081031

REACTIONS (1)
  - HEPATITIS [None]
